FAERS Safety Report 11442625 (Version 1)
Quarter: 2015Q3

REPORT INFORMATION
  Report Type: Report from Study
  Country: ES (occurrence: ES)
  Receive Date: 20150901
  Receipt Date: 20150901
  Transmission Date: 20151125
  Serious: Yes (Hospitalization)
  Sender: FDA-Public Use
  Company Number: ES-PFIZER INC-2015284245

PATIENT
  Age: 81 Year
  Sex: Female

DRUGS (7)
  1. LOSARTAN. [Concomitant]
     Active Substance: LOSARTAN
     Indication: HYPERTENSION
     Dosage: 50 MG, 1X/DAY (1-0-0)
     Route: 048
     Dates: start: 20130302, end: 20140922
  2. POTASION [Concomitant]
     Active Substance: POTASSIUM CHLORIDE
     Indication: HYPOKALAEMIA
     Dosage: 600 MG, 1X/DAY (1-0-0)
     Route: 048
     Dates: start: 20140622, end: 20140922
  3. SEGURIL [Concomitant]
     Active Substance: FUROSEMIDE
     Indication: CARDIAC FAILURE
     Dosage: 40 MG, 2X/DAY (1-1-0)
     Route: 048
     Dates: start: 20131106
  4. ADIRO [Concomitant]
     Active Substance: ASPIRIN
     Indication: MYOCARDIAL ISCHAEMIA
     Dosage: 100 MG, 1X/DAY (0-1-0)
     Route: 048
     Dates: start: 2010
  5. TRAMADOL/PARACETAMOL [Concomitant]
     Active Substance: ACETAMINOPHEN\TRAMADOL
     Indication: PAIN
     Dosage: 1-1-1, 3X/DAY
     Route: 048
     Dates: start: 20131127
  6. EPLERENONE. [Suspect]
     Active Substance: EPLERENONE
     Indication: CARDIAC FAILURE CONGESTIVE
     Dosage: 25 MG, 1X/DAY
     Route: 048
     Dates: start: 20140622, end: 20140922
  7. BISOPROLOL [Concomitant]
     Active Substance: BISOPROLOL
     Indication: CARDIAC FAILURE CONGESTIVE
     Dosage: 1/2-0-0
     Route: 048
     Dates: start: 20140622, end: 20140922

REACTIONS (2)
  - Hyperkalaemia [Recovered/Resolved]
  - Atrioventricular block complete [Unknown]

NARRATIVE: CASE EVENT DATE: 20140922
